FAERS Safety Report 15645543 (Version 1)
Quarter: 2018Q4

REPORT INFORMATION
  Report Type: Spontaneous
  Country: US (occurrence: US)
  Receive Date: 20181121
  Receipt Date: 20181121
  Transmission Date: 20190205
  Serious: Yes (Life-Threatening, Other)
  Sender: FDA-Public Use
  Company Number: None

PATIENT
  Age: 59 Year
  Sex: Female
  Weight: 57.6 kg

DRUGS (22)
  1. AMPHOTERICIN [Concomitant]
     Active Substance: AMPHOTERICIN B
     Dates: start: 20180330, end: 20180406
  2. AXICABTAGENE CILOLEUCEL [Suspect]
     Active Substance: AXICABTAGENE CILOLEUCEL
     Indication: DIFFUSE LARGE B-CELL LYMPHOMA
     Dosage: ?          OTHER FREQUENCY:ONCE;?
     Route: 041
     Dates: start: 20180313, end: 20180313
  3. FENTANYL. [Concomitant]
     Active Substance: FENTANYL
     Dates: start: 20180316, end: 20180405
  4. HYDROCORTISONE SODIUM SUCCINATE [Concomitant]
     Active Substance: HYDROCORTISONE SODIUM SUCCINATE
     Dates: start: 20180406, end: 20180406
  5. MEROPENEM. [Concomitant]
     Active Substance: MEROPENEM
     Dates: start: 20180316, end: 20180320
  6. MIDAZOLAM [Concomitant]
     Active Substance: MIDAZOLAM HYDROCHLORIDE
     Dates: start: 20180316, end: 20180328
  7. PIPERACILLIN AND TAZOBACTAM [Concomitant]
     Active Substance: PIPERACILLIN SODIUM\TAZOBACTAM SODIUM
     Dates: start: 20180320, end: 20180406
  8. TBO-FILGRASTIM [Concomitant]
     Active Substance: TBO-FILGRASTIM
     Dates: start: 20180320, end: 20180406
  9. CASPOFUNGIN [Concomitant]
     Active Substance: CASPOFUNGIN
     Dates: start: 20180316, end: 20180329
  10. DEXMEDETOMIDE [Concomitant]
     Dates: start: 20180322, end: 20180327
  11. LORAZEPAM. [Concomitant]
     Active Substance: LORAZEPAM
     Dates: start: 20180323, end: 20180404
  12. MILRINONE [Concomitant]
     Active Substance: MILRINONE
     Dates: start: 20180318, end: 20180327
  13. AMIODARONE [Concomitant]
     Active Substance: AMIODARONE
     Dates: start: 20180317, end: 20180406
  14. LACOSAMIDE. [Concomitant]
     Active Substance: LACOSAMIDE
     Dates: start: 20180402, end: 20180406
  15. VASOPRESSIN. [Concomitant]
     Active Substance: VASOPRESSIN
     Dates: start: 20180316, end: 20180406
  16. ALBUMIN HUMAN [Concomitant]
     Active Substance: ALBUMIN HUMAN
     Dates: start: 20180321, end: 20180328
  17. ALLOPURINOL. [Concomitant]
     Active Substance: ALLOPURINOL
     Dates: start: 20180320, end: 20180403
  18. IPRATROPIUM [Concomitant]
     Active Substance: IPRATROPIUM
     Dates: start: 20180316, end: 20180406
  19. ALBUTEROL. [Concomitant]
     Active Substance: ALBUTEROL
     Dates: start: 20180316, end: 20180406
  20. NOREPINEPHRINE. [Concomitant]
     Active Substance: NOREPINEPHRINE
     Dates: start: 20180316, end: 20180406
  21. PHENYLEPHRINE [Concomitant]
     Active Substance: PHENYLEPHRINE\PHENYLEPHRINE HYDROCHLORIDE
     Dates: start: 20180317, end: 20180406
  22. DIGOXIN. [Concomitant]
     Active Substance: DIGOXIN
     Dates: start: 20180319, end: 20180406

REACTIONS (14)
  - Cytokine release syndrome [None]
  - Cerebral haematoma [None]
  - Neurotoxicity [None]
  - Acute respiratory failure [None]
  - Acute kidney injury [None]
  - Acute respiratory distress syndrome [None]
  - Septic shock [None]
  - Cerebellar infarction [None]
  - Dialysis [None]
  - Cerebrovascular accident [None]
  - Infusion related reaction [None]
  - Pneumonia [None]
  - Cardio-respiratory arrest [None]
  - Tremor [None]

NARRATIVE: CASE EVENT DATE: 20180314
